FAERS Safety Report 5867429-6 (Version None)
Quarter: 2008Q3

REPORT INFORMATION
  Report Type: 
  Country: None (occurrence: None)
  Receive Date: 20080902
  Receipt Date: 20080902
  Transmission Date: 20090109
  Serious: Yes (Hospitalization)
  Sender: FDA-Public Use
  Company Number: PHEH1996US00087

PATIENT
  Sex: Female
  Weight: 30.009 kg

DRUGS (2)
  1. NEORAL [Suspect]
     Route: 048
     Dates: start: 19950409
  2. PREDNISONE TAB [Concomitant]

REACTIONS (5)
  - ABDOMINAL PAIN [None]
  - CYTOMEGALOVIRUS INFECTION [None]
  - NAUSEA [None]
  - PYREXIA [None]
  - VOMITING [None]
